FAERS Safety Report 6458170-X (Version None)
Quarter: 2009Q4

REPORT INFORMATION
  Report Type: 
  Country: None (occurrence: None)
  Receive Date: 20091125
  Receipt Date: 20091110
  Transmission Date: 20100525
  Serious: Yes (Hospitalization)
  Sender: FDA-Public Use
  Company Number: US-WYE-H12359409

PATIENT
  Age: 83 Year
  Sex: Female

DRUGS (2)
  1. CORDARONE [Suspect]
     Indication: ATRIAL FIBRILLATION
     Dosage: UNKNOWN
     Route: 048
     Dates: end: 20090921
  2. MULTAQ [Concomitant]
     Indication: ATRIAL FIBRILLATION
     Route: 048
     Dates: start: 20090922

REACTIONS (3)
  - DECREASED ACTIVITY [None]
  - DELUSION [None]
  - DEPRESSION [None]
